FAERS Safety Report 19266543 (Version 1)
Quarter: 2021Q2

REPORT INFORMATION
  Report Type: Spontaneous
  Country: FR (occurrence: FR)
  Receive Date: 20210517
  Receipt Date: 20210517
  Transmission Date: 20210717
  Serious: Yes (Hospitalization, Other)
  Sender: FDA-Public Use
  Company Number: FR-GUERBET-FR-20210150

PATIENT
  Age: 57 Year
  Sex: Male

DRUGS (4)
  1. NOREPINEPHRINE. [Concomitant]
     Active Substance: NOREPINEPHRINE
     Indication: SHOCK HAEMORRHAGIC
     Route: 065
  2. LIPIODOL [Suspect]
     Active Substance: ETHIODIZED OIL
     Indication: SCLEROTHERAPY
     Route: 065
  3. GLUBRAN [Concomitant]
     Route: 065
  4. GLUBRAN [Concomitant]
     Indication: SCLEROTHERAPY
     Route: 065

REACTIONS (2)
  - Hepatic embolisation [Recovered/Resolved]
  - Pulmonary embolism [Recovered/Resolved]
